FAERS Safety Report 10240182 (Version 1)
Quarter: 2014Q2

REPORT INFORMATION
  Report Type: Spontaneous
  Country: US (occurrence: US)
  Receive Date: 20140617
  Receipt Date: 20140617
  Transmission Date: 20141212
  Serious: Yes (Other)
  Sender: FDA-Public Use
  Company Number: US-ROCHE-1416691

PATIENT
  Sex: Female

DRUGS (3)
  1. KADCYLA [Suspect]
     Indication: BREAST CANCER METASTATIC
     Route: 065
     Dates: start: 2014
  2. HERCEPTIN [Suspect]
     Indication: BREAST CANCER METASTATIC
     Route: 065
     Dates: start: 201305, end: 2014
  3. PERJETA [Suspect]
     Indication: BREAST CANCER METASTATIC
     Route: 065
     Dates: start: 201305, end: 2014

REACTIONS (6)
  - Pulmonary oedema [Unknown]
  - Fatigue [Unknown]
  - Sluggishness [Unknown]
  - Dyspnoea [Not Recovered/Not Resolved]
  - Haemoglobin decreased [Not Recovered/Not Resolved]
  - Metastasis [Not Recovered/Not Resolved]
